FAERS Safety Report 4864022-9 (Version None)
Quarter: 2005Q4

REPORT INFORMATION
  Report Type: 
  Country: None (occurrence: None)
  Receive Date: 20051222
  Receipt Date: 20051213
  Transmission Date: 20060501
  Serious: Yes (Hospitalization, Disabling, Other)
  Sender: FDA-Public Use
  Company Number: JP-BRISTOL-MYERS SQUIBB COMPANY-13222971

PATIENT
  Age: 88 Year
  Sex: Female

DRUGS (8)
  1. MEVALOTIN [Suspect]
     Indication: HYPERLIPIDAEMIA
     Route: 048
     Dates: start: 19941119, end: 20050923
  2. ARICEPT [Concomitant]
     Indication: DEMENTIA ALZHEIMER'S TYPE
     Dates: start: 20050901, end: 20051118
  3. ASPIRIN [Concomitant]
     Indication: DEMENTIA ALZHEIMER'S TYPE
     Dates: start: 20050901
  4. DOGMATYL [Concomitant]
     Indication: GASTROINTESTINAL DISORDER
     Dates: start: 20050901, end: 20050926
  5. ROHYPNOL [Concomitant]
     Indication: INSOMNIA
     Dates: start: 20020829
  6. ASPARA-CA [Concomitant]
     Indication: OSTEOPOROSIS
     Dates: start: 20020829
  7. CALCITRIOL [Concomitant]
     Indication: OSTEOPOROSIS
     Dates: start: 20021114
  8. BETHANECHOL CHLORIDE [Concomitant]
     Indication: NEUROGENIC BLADDER
     Dates: start: 20020829

REACTIONS (2)
  - DEMENTIA ALZHEIMER'S TYPE [None]
  - RHABDOMYOLYSIS [None]
